FAERS Safety Report 21358074 (Version 7)
Quarter: 2023Q4

REPORT INFORMATION
  Report Type: Report from Study
  Country: US (occurrence: US)
  Receive Date: 20220921
  Receipt Date: 20231108
  Transmission Date: 20240110
  Serious: Yes (Other)
  Sender: FDA-Public Use
  Company Number: US-NOVARTISTESTPH-NVSC2022US212558

PATIENT
  Age: 8 Year
  Sex: Female

DRUGS (5)
  1. ILARIS [Suspect]
     Active Substance: CANAKINUMAB
     Indication: Pyrexia
     Dosage: 150 MG, OTHER (Q5 WEEKS)
     Route: 058
     Dates: start: 20200203
  2. ILARIS [Suspect]
     Active Substance: CANAKINUMAB
     Dosage: 150 MG, OTHER (Q4 WEEKS)
     Route: 058
     Dates: start: 20200203
  3. ILARIS [Suspect]
     Active Substance: CANAKINUMAB
     Dosage: UNK
     Route: 065
     Dates: start: 20230216
  4. ILARIS [Suspect]
     Active Substance: CANAKINUMAB
     Dosage: UNK
     Route: 065
     Dates: start: 20230326
  5. ILARIS [Suspect]
     Active Substance: CANAKINUMAB
     Dosage: UNK
     Route: 065
     Dates: start: 20230429

REACTIONS (23)
  - Streptobacillus infection [Unknown]
  - Liver function test increased [Recovering/Resolving]
  - Mouth ulceration [Recovering/Resolving]
  - Headache [Unknown]
  - Microcytosis [Unknown]
  - Diarrhoea [Recovering/Resolving]
  - Anxiety [Unknown]
  - C-reactive protein increased [Unknown]
  - Migraine [Unknown]
  - Illness [Unknown]
  - Body temperature increased [Recovered/Resolved]
  - Asthma [Unknown]
  - Cough [Not Recovered/Not Resolved]
  - Blood immunoglobulin D increased [Unknown]
  - Pharyngitis streptococcal [Unknown]
  - Abdominal pain upper [Recovering/Resolving]
  - Vomiting [Not Recovered/Not Resolved]
  - Ear infection [Recovered/Resolved]
  - Inappropriate schedule of product administration [Unknown]
  - Tonsillitis [Unknown]
  - Nasal congestion [Unknown]
  - Oropharyngeal pain [Recovered/Resolved]
  - Oropharyngeal pain [Recovered/Resolved]

NARRATIVE: CASE EVENT DATE: 20220701
